FAERS Safety Report 9913782 (Version 1)
Quarter: 2014Q1

REPORT INFORMATION
  Report Type: Spontaneous
  Country: ZA (occurrence: ZA)
  Receive Date: 20140220
  Receipt Date: 20140220
  Transmission Date: 20141002
  Serious: Yes (Death)
  Sender: FDA-Public Use
  Company Number: ZA-ASTRAZENECA-2014SE11315

PATIENT
  Age: 34756 Day
  Sex: Male

DRUGS (2)
  1. NEXIAM [Suspect]
     Indication: GASTROOESOPHAGEAL REFLUX DISEASE
     Route: 048
     Dates: start: 20140117, end: 20140213
  2. GLUCOPHAGE F [Concomitant]

REACTIONS (1)
  - Death [Fatal]
